FAERS Safety Report 4391065-4 (Version None)
Quarter: 2004Q2

REPORT INFORMATION
  Report Type: 
  Country: None (occurrence: None)
  Receive Date: 20040621
  Receipt Date: 20031202
  Transmission Date: 20050107
  Serious: Yes (Other)
  Sender: FDA-Public Use
  Company Number: USA-2003-0006295

PATIENT
  Age: 61 Year
  Sex: Female
  Weight: 92.5 kg

DRUGS (3)
  1. OXYCONTIN [Suspect]
  2. VIOXX [Concomitant]
  3. NAPROXEN [Concomitant]

REACTIONS (14)
  - DEPRESSION [None]
  - DRUG ABUSER [None]
  - DRUG DEPENDENCE [None]
  - DRUG WITHDRAWAL SYNDROME [None]
  - EMOTIONAL DISTRESS [None]
  - FALL [None]
  - GASTROINTESTINAL INJURY [None]
  - HEADACHE [None]
  - INSOMNIA [None]
  - NAUSEA [None]
  - NECK MASS [None]
  - ORAL PAIN [None]
  - PAIN [None]
  - PYREXIA [None]
